FAERS Safety Report 6189000-1 (Version None)
Quarter: 2009Q2

REPORT INFORMATION
  Report Type: 
  Country: None (occurrence: None)
  Receive Date: 20090512
  Receipt Date: 20090512
  Transmission Date: 20091009
  Serious: No
  Sender: FDA-Public Use
  Company Number: None

PATIENT
  Age: 38 Year
  Sex: Female
  Weight: 100 kg

DRUGS (1)
  1. DOCETAXEL [Suspect]
     Indication: CHEMOTHERAPY
     Dosage: 150 MG Q24 IV
     Route: 042
     Dates: start: 20090408

REACTIONS (2)
  - ABDOMINAL PAIN [None]
  - DYSPNOEA [None]
